FAERS Safety Report 7485433-1 (Version None)
Quarter: 2011Q2

REPORT INFORMATION
  Report Type: 
  Country: None (occurrence: None)
  Receive Date: 20110517
  Receipt Date: 20110509
  Transmission Date: 20111010
  Serious: Yes (Other)
  Sender: FDA-Public Use
  Company Number: GB-ALLERGAN-1106434US

PATIENT
  Age: 81 Year
  Sex: Female

DRUGS (8)
  1. LEVOTHYROXINE SODIUM [Concomitant]
     Dosage: 125 A?G, QD
     Route: 048
  2. ALPHAGAN [Suspect]
     Indication: GLAUCOMA
     Route: 047
  3. COSOPT [Suspect]
     Indication: GLAUCOMA
     Dosage: 1 DF, BID
     Route: 047
  4. ALENDRONIC ACID [Concomitant]
     Dosage: 70 MG, Q WEEK
     Route: 048
  5. XALATAN [Suspect]
     Indication: GLAUCOMA
     Dosage: 1 DF, QD
     Route: 047
  6. ARIMIDEX [Concomitant]
     Indication: PRODUCT USED FOR UNKNOWN INDICATION
     Dosage: 1 MG, QD
     Route: 048
  7. CALCICHEW D3 [Concomitant]
     Dosage: 2 DF, QD
  8. BENDROFLUAZIDE [Concomitant]
     Dosage: 5 MG, QD
     Route: 048

REACTIONS (2)
  - INTRAOCULAR PRESSURE INCREASED [None]
  - DRUG INEFFECTIVE [None]
